FAERS Safety Report 24209808 (Version 1)
Quarter: 2024Q3

REPORT INFORMATION
  Report Type: Spontaneous
  Country: CN (occurrence: CN)
  Receive Date: 20240814
  Receipt Date: 20240814
  Transmission Date: 20241017
  Serious: Yes (Other)
  Sender: PFIZER
  Company Number: CN-PFIZER INC-PV202400103977

PATIENT
  Age: 48 Year
  Sex: Male

DRUGS (8)
  1. MEROPENEM [Interacting]
     Active Substance: MEROPENEM
     Indication: Listeriosis
     Dosage: 2 G, 3X/DAY
     Route: 042
     Dates: start: 202209
  2. MEROPENEM [Interacting]
     Active Substance: MEROPENEM
     Indication: Encephalitis
  3. MOXIFLOXACIN [Interacting]
     Active Substance: MOXIFLOXACIN
     Indication: Listeriosis
     Dosage: 0.4 G, DAILY
     Route: 042
     Dates: start: 202209
  4. MOXIFLOXACIN [Interacting]
     Active Substance: MOXIFLOXACIN
     Indication: Encephalitis
  5. DEXAMETHASONE [Interacting]
     Active Substance: DEXAMETHASONE
     Indication: Encephalitis
     Dosage: 10 MG, DAILY
     Route: 042
     Dates: start: 202210
  6. DEXAMETHASONE [Interacting]
     Active Substance: DEXAMETHASONE
     Indication: Listeriosis
  7. AMPICILLIN [Concomitant]
     Active Substance: AMPICILLIN
     Indication: Encephalitis
     Dosage: 2 G, 4X/DAY
     Route: 042
     Dates: start: 202210
  8. AMPICILLIN [Concomitant]
     Active Substance: AMPICILLIN
     Indication: Listeriosis

REACTIONS (3)
  - Drug interaction [Recovered/Resolved]
  - Muscle disorder [Recovered/Resolved]
  - Infection [Recovered/Resolved]
